FAERS Safety Report 25627045 (Version 1)
Quarter: 2025Q3

REPORT INFORMATION
  Report Type: Spontaneous
  Country: US (occurrence: None)
  Receive Date: 20250730
  Receipt Date: 20250730
  Transmission Date: 20251020
  Serious: Yes (Other)
  Sender: FDA-CTU
  Company Number: None

PATIENT
  Age: 28 Year
  Sex: Male
  Weight: 103.5 kg

DRUGS (1)
  1. HERBALS\MITRAGYNINE [Suspect]
     Active Substance: HERBALS\MITRAGYNINE
     Indication: Drug dependence
     Route: 048
     Dates: start: 20250301, end: 20250724

REACTIONS (4)
  - Withdrawal syndrome [None]
  - Job dissatisfaction [None]
  - General physical health deterioration [None]
  - Substance use [None]

NARRATIVE: CASE EVENT DATE: 20250724
